FAERS Safety Report 20507688 (Version 5)
Quarter: 2023Q2

REPORT INFORMATION
  Report Type: Spontaneous
  Country: US (occurrence: US)
  Receive Date: 20220223
  Receipt Date: 20230419
  Transmission Date: 20230722
  Serious: No
  Sender: FDA-Public Use
  Company Number: US-NOVARTISTESTPH-NVSC2022US041254

PATIENT
  Sex: Female

DRUGS (4)
  1. VOTRIENT [Suspect]
     Active Substance: PAZOPANIB HYDROCHLORIDE
     Indication: Neoplasm
     Dosage: 800 MG, QD
     Route: 048
     Dates: start: 20220210
  2. VOTRIENT [Suspect]
     Active Substance: PAZOPANIB HYDROCHLORIDE
     Dosage: 800 MG, QD
     Route: 048
     Dates: start: 20220215
  3. VOTRIENT [Suspect]
     Active Substance: PAZOPANIB HYDROCHLORIDE
     Dosage: 800 MG, QD
     Route: 048
     Dates: start: 20220702
  4. VOTRIENT [Suspect]
     Active Substance: PAZOPANIB HYDROCHLORIDE
     Dosage: 400 MG, QD
     Route: 048
     Dates: start: 202209

REACTIONS (9)
  - Skin discolouration [Unknown]
  - Ageusia [Unknown]
  - Pain [Unknown]
  - Nausea [Unknown]
  - Hair colour changes [Unknown]
  - Tumour pain [Unknown]
  - Headache [Unknown]
  - Weight decreased [Unknown]
  - Diarrhoea [Unknown]
